FAERS Safety Report 16467347 (Version 1)
Quarter: 2019Q2

REPORT INFORMATION
  Report Type: Report from Study
  Country: JP (occurrence: JP)
  Receive Date: 20190624
  Receipt Date: 20190624
  Transmission Date: 20190711
  Serious: Yes (Life-Threatening)
  Sender: FDA-Public Use
  Company Number: JP-ROCHE-2341275

PATIENT
  Age: 74 Year
  Sex: Female
  Weight: 59 kg

DRUGS (7)
  1. FUROSEMIDE. [Suspect]
     Active Substance: FUROSEMIDE
     Indication: PRODUCT USE IN UNAPPROVED INDICATION
     Dosage: DOSAGE IS UNCERTAIN.
     Route: 065
  2. ENALAPRIL MALEATE. [Suspect]
     Active Substance: ENALAPRIL MALEATE
     Indication: PRODUCT USE IN UNAPPROVED INDICATION
     Dosage: DOSAGE IS UNCERTAIN.
     Route: 065
  3. AMLODIPINE BESILATE [Suspect]
     Active Substance: AMLODIPINE BESYLATE
     Indication: PRODUCT USE IN UNAPPROVED INDICATION
     Dosage: DOSAGE IS UNCERTAIN.
     Route: 065
  4. ASPENON [Suspect]
     Active Substance: APRINDINE HYDROCHLORIDE
     Indication: PRODUCT USE IN UNAPPROVED INDICATION
     Route: 048
     Dates: start: 20190118, end: 20190524
  5. ATEZOLIZUMAB. [Suspect]
     Active Substance: ATEZOLIZUMAB
     Indication: NON-SMALL CELL LUNG CANCER METASTATIC
     Route: 041
     Dates: start: 20180704, end: 20190424
  6. ALDACTONE A [Suspect]
     Active Substance: SPIRONOLACTONE
     Indication: PRODUCT USE IN UNAPPROVED INDICATION
     Route: 065
  7. ESOMEPRAZOLE. [Suspect]
     Active Substance: ESOMEPRAZOLE MAGNESIUM
     Indication: PRODUCT USE IN UNAPPROVED INDICATION
     Dosage: DOSAGE IS UNCERTAIN.
     Route: 065
     Dates: end: 20190515

REACTIONS (1)
  - Neutropenia [Not Recovered/Not Resolved]

NARRATIVE: CASE EVENT DATE: 20190507
